FAERS Safety Report 10331011 (Version 7)
Quarter: 2020Q2

REPORT INFORMATION
  Report Type: Report from Study
  Country: US (occurrence: US)
  Receive Date: 20140722
  Receipt Date: 20200409
  Transmission Date: 20200713
  Serious: Yes (Other)
  Sender: FDA-Public Use
  Company Number: US-SA-2014SA095884

PATIENT
  Age: 34 Year
  Sex: Female

DRUGS (7)
  1. AGALSIDASE BETA [Suspect]
     Active Substance: AGALSIDASE BETA
     Indication: FABRY^S DISEASE
     Dosage: 75MG, QOW
     Route: 042
     Dates: start: 20130506
  2. IRON [Suspect]
     Active Substance: IRON
     Route: 065
  3. AGALSIDASE BETA [Suspect]
     Active Substance: AGALSIDASE BETA
     Dosage: 75MG, QOW
     Route: 042
     Dates: start: 20180321
  4. ENSURE [NUTRIENTS NOS] [Concomitant]
     Route: 065
  5. MULTIVITAMIN [ASCORBIC ACID;BIOTIN;CALCIUM PANTOTHENATE;CYANOCOBALAMIN [Concomitant]
     Active Substance: VITAMINS
     Route: 065
  6. VITAMIN C [Concomitant]
     Active Substance: ASCORBIC ACID
     Route: 065
  7. BENADRYL [Concomitant]
     Active Substance: DIPHENHYDRAMINE HYDROCHLORIDE
     Route: 065

REACTIONS (23)
  - Depressed mood [Not Recovered/Not Resolved]
  - Abdominal pain upper [Recovering/Resolving]
  - Osteopenia [Not Recovered/Not Resolved]
  - Tooth fracture [Not Recovered/Not Resolved]
  - Dolichocolon [Recovering/Resolving]
  - Menorrhagia [Recovering/Resolving]
  - Pain [Recovering/Resolving]
  - Complication associated with device [Recovering/Resolving]
  - Thrombosis [Not Recovered/Not Resolved]
  - Fatigue [Recovering/Resolving]
  - Tooth extraction [Recovering/Resolving]
  - Foot fracture [Not Recovered/Not Resolved]
  - Stress [Not Recovered/Not Resolved]
  - Feeling abnormal [Recovering/Resolving]
  - Urine analysis abnormal [Unknown]
  - Osteoporosis [Not Recovered/Not Resolved]
  - Dental caries [Recovering/Resolving]
  - Toothache [Not Recovered/Not Resolved]
  - Neuralgia [Recovering/Resolving]
  - Pyrexia [Not Recovered/Not Resolved]
  - Oral pain [Recovering/Resolving]
  - Polypectomy [Recovering/Resolving]
  - Chest pain [Recovering/Resolving]

NARRATIVE: CASE EVENT DATE: 201404
